FAERS Safety Report 8382180-9 (Version None)
Quarter: 2012Q2

REPORT INFORMATION
  Report Type: 
  Country: None (occurrence: None)
  Receive Date: 20120524
  Receipt Date: 20120517
  Transmission Date: 20120825
  Serious: Yes (Hospitalization)
  Sender: FDA-Public Use
  Company Number: JP-BAYER-2012-049585

PATIENT
  Sex: Female

DRUGS (1)
  1. BETASERON [Suspect]
     Indication: SUBACUTE SCLEROSING PANENCEPHALITIS
     Dosage: 3000000 U, TIW
     Route: 037

REACTIONS (1)
  - MENINGITIS ASEPTIC [None]
